FAERS Safety Report 14033313 (Version 1)
Quarter: 2017Q4

REPORT INFORMATION
  Report Type: Spontaneous
  Country: US (occurrence: US)
  Receive Date: 20171002
  Receipt Date: 20171002
  Transmission Date: 20180321
  Serious: No
  Sender: FDA-Public Use
  Company Number: None

PATIENT
  Age: 46 Year
  Sex: Female
  Weight: 146.25 kg

DRUGS (1)
  1. CONTRAVE [Suspect]
     Active Substance: BUPROPION HYDROCHLORIDE\NALTREXONE HYDROCHLORIDE
     Indication: WEIGHT CONTROL
     Dosage: ?          QUANTITY:70 TABLET(S);?
     Route: 048
     Dates: start: 20170802, end: 20170915

REACTIONS (8)
  - Loss of personal independence in daily activities [None]
  - Vision blurred [None]
  - Neck pain [None]
  - Headache [None]
  - Feeling abnormal [None]
  - Dizziness [None]
  - Disorientation [None]
  - Hypersomnia [None]

NARRATIVE: CASE EVENT DATE: 20170909
